FAERS Safety Report 17424239 (Version 1)
Quarter: 2020Q1

REPORT INFORMATION
  Report Type: Spontaneous
  Country: GB (occurrence: GB)
  Receive Date: 20200217
  Receipt Date: 20200217
  Transmission Date: 20200409
  Serious: Yes (Life-Threatening, Hospitalization)
  Sender: FDA-Public Use
  Company Number: GB-TEVA-368007ISR

PATIENT
  Age: 72 Year

DRUGS (9)
  1. CO-AMOXICLAV [Suspect]
     Active Substance: AMOXICILLIN\CLAVULANATE POTASSIUM
     Indication: SEPSIS
     Dosage: 3.6 GRAM DAILY;
     Route: 041
     Dates: start: 20110328, end: 20110403
  2. ERYTHROMYCIN. [Suspect]
     Active Substance: ERYTHROMYCIN
     Dosage: 375 MILLIGRAM DAILY;
     Route: 048
     Dates: start: 20110319, end: 20110321
  3. TRIMETHOPRIM. [Suspect]
     Active Substance: TRIMETHOPRIM
     Indication: URINARY TRACT INFECTION
     Dosage: 400 MILLIGRAM DAILY; PATIENT HAD TWO DOSES
     Route: 048
     Dates: start: 20110305, end: 20110305
  4. PIPERACILLIN AND TAZOBACTAM [Suspect]
     Active Substance: PIPERACILLIN SODIUM\TAZOBACTAM SODIUM
     Indication: PNEUMONIA
     Dosage: 13.5 GRAM DAILY;
     Route: 041
     Dates: start: 20110420, end: 20110425
  5. MEROPENEM. [Suspect]
     Active Substance: MEROPENEM
     Indication: PANCREATITIS NECROTISING
     Dosage: 3 GRAM DAILY;
     Route: 041
     Dates: start: 20110309, end: 20110313
  6. FLUCLOXACILLIN [Suspect]
     Active Substance: FLUCLOXACILLIN
     Dosage: 2000 MILLIGRAM DAILY;
     Route: 048
     Dates: start: 20100908
  7. CEFTRIAXONE. [Suspect]
     Active Substance: CEFTRIAXONE
     Indication: PANCREATITIS
     Dosage: 1 GRAM DAILY; PATIENT HAD 1 DOSE
     Route: 041
     Dates: start: 20110308, end: 20110308
  8. CEFUROXIME. [Suspect]
     Active Substance: CEFUROXIME
     Dosage: PATIENT HAD 1 STAT DOSE
     Route: 041
     Dates: start: 20110308, end: 20110308
  9. METRONIDAZOLE. [Suspect]
     Active Substance: METRONIDAZOLE
     Dosage: 1500 MILLIGRAM DAILY; 100MG/20ML SOLUTION FOR INFUSION AMPOULES. PATIENT HAD 1 DOSE
     Route: 041
     Dates: start: 20110308, end: 20110308

REACTIONS (1)
  - Clostridium test positive [Recovered/Resolved]

NARRATIVE: CASE EVENT DATE: 20110421
